FAERS Safety Report 15247546 (Version 1)
Quarter: 2018Q4

REPORT INFORMATION
  Report Type: Spontaneous
  Country: US (occurrence: US)
  Receive Date: 20180807
  Receipt Date: 20180807
  Transmission Date: 20190204
  Serious: Yes (Other)
  Sender: FDA-Public Use
  Company Number: US-PHARMACEUTICS INTERNATIONAL, INC. (PII)-2018PII000023

PATIENT

DRUGS (1)
  1. POTASSIUM CHLORIDE USP [Suspect]
     Active Substance: POTASSIUM CHLORIDE
     Indication: FOETICIDE
     Dosage: UNK
     Route: 065

REACTIONS (2)
  - Pain [Unknown]
  - Uterine atony [Unknown]
